FAERS Safety Report 25823160 (Version 2)
Quarter: 2025Q4

REPORT INFORMATION
  Report Type: Spontaneous
  Country: CN (occurrence: CN)
  Receive Date: 20250919
  Receipt Date: 20251024
  Transmission Date: 20260118
  Serious: Yes (Other)
  Sender: JOHNSON AND JOHNSON
  Company Number: CN-JNJFOC-20250919130

PATIENT
  Age: 46 Year
  Sex: Female

DRUGS (3)
  1. RYBREVANT [Suspect]
     Active Substance: AMIVANTAMAB-VMJW
     Indication: Non-small cell lung cancer
     Dosage: 350 MG (7.0 ML)/VIAL
     Route: 065
     Dates: start: 20250831, end: 20250924
  2. CARBOPLATIN [Concomitant]
     Active Substance: CARBOPLATIN
     Indication: Product used for unknown indication
  3. PEMETREXED [Concomitant]
     Active Substance: PEMETREXED
     Indication: Product used for unknown indication

REACTIONS (5)
  - Myelosuppression [Unknown]
  - Glossodynia [Unknown]
  - Perineal injury [Unknown]
  - Capillary fragility [Recovered/Resolved]
  - Haemangioma of skin [Unknown]

NARRATIVE: CASE EVENT DATE: 20250910
